FAERS Safety Report 12372363 (Version 1)
Quarter: 2016Q2

REPORT INFORMATION
  Report Type: Spontaneous
  Country: GB (occurrence: GB)
  Receive Date: 20160516
  Receipt Date: 20160516
  Transmission Date: 20160815
  Serious: Yes (Hospitalization, Other)
  Sender: FDA-Public Use
  Company Number: PHHY2016GB062608

PATIENT
  Age: 57 Year
  Sex: Male

DRUGS (1)
  1. CEFUROXIME. [Suspect]
     Active Substance: CEFUROXIME
     Indication: PRODUCT USED FOR UNKNOWN INDICATION
     Dosage: TEST DOSE
     Route: 065

REACTIONS (5)
  - Generalised erythema [Unknown]
  - Oxygen saturation decreased [Unknown]
  - Nausea [Unknown]
  - Blood pressure decreased [Unknown]
  - Retching [Unknown]

NARRATIVE: CASE EVENT DATE: 20160215
